FAERS Safety Report 6241729-2 (Version None)
Quarter: 2009Q2

REPORT INFORMATION
  Report Type: 
  Country: None (occurrence: None)
  Receive Date: 20090623
  Receipt Date: 20061213
  Transmission Date: 20091009
  Serious: Yes (Hospitalization, Other)
  Sender: FDA-Public Use
  Company Number: NL-ROCHE-474657

PATIENT
  Age: 46 Year
  Sex: Female

DRUGS (6)
  1. CELLCEPT [Suspect]
     Route: 065
     Dates: start: 19961001
  2. CELLCEPT [Suspect]
     Dosage: DOSAGE WAS LOWERED
     Route: 065
  3. CYCLOSPORINE [Suspect]
     Route: 065
     Dates: start: 19961001
  4. CYCLOSPORINE [Suspect]
     Dosage: DOSE LOWERED
     Route: 065
  5. PREDNISOLONE [Suspect]
     Route: 065
     Dates: start: 19961001
  6. PREDNISOLONE [Suspect]
     Dosage: DOSE LOWERED
     Route: 065

REACTIONS (2)
  - BRONCHIECTASIS [None]
  - TRANSPLANT REJECTION [None]
